FAERS Safety Report 10071517 (Version 1)
Quarter: 2014Q2

REPORT INFORMATION
  Report Type: Spontaneous
  Country: BR (occurrence: BR)
  Receive Date: 20140410
  Receipt Date: 20140410
  Transmission Date: 20141212
  Serious: Yes (Hospitalization)
  Sender: FDA-Public Use
  Company Number: BR-PFIZER INC-2014096365

PATIENT
  Age: 53 Year
  Sex: Female
  Weight: 45 kg

DRUGS (3)
  1. XALATAN [Suspect]
     Indication: GLAUCOMA
     Dosage: 3 UG (1 DROP IN BOTH EYES) DAILY
     Route: 047
     Dates: start: 2009
  2. ALPHAGAN [Concomitant]
     Indication: GLAUCOMA
     Dosage: UNK
  3. AZOPT [Concomitant]
     Indication: GLAUCOMA
     Dosage: UNK

REACTIONS (1)
  - Eye disorder [Unknown]
